FAERS Safety Report 7945105-3 (Version None)
Quarter: 2011Q4

REPORT INFORMATION
  Report Type: 
  Country: None (occurrence: None)
  Receive Date: 20111129
  Receipt Date: 20111129
  Transmission Date: 20120403
  Serious: Yes (Hospitalization)
  Sender: FDA-Public Use
  Company Number: None

PATIENT
  Age: 63 Year
  Sex: Male
  Weight: 90.2 kg

DRUGS (1)
  1. DECITABINE [Suspect]
     Indication: ACUTE MYELOID LEUKAEMIA RECURRENT
     Dosage: 20 MG/M2
     Route: 041
     Dates: start: 20111117, end: 20111121

REACTIONS (1)
  - FEBRILE NEUTROPENIA [None]
